FAERS Safety Report 8302246-9 (Version None)
Quarter: 2012Q2

REPORT INFORMATION
  Report Type: 
  Country: None (occurrence: None)
  Receive Date: 20120420
  Receipt Date: 20120413
  Transmission Date: 20120825
  Serious: Yes (Hospitalization)
  Sender: FDA-Public Use
  Company Number: US-AMGEN-USASP2012023696

PATIENT
  Age: 32 Year
  Sex: Male

DRUGS (2)
  1. ENBREL [Suspect]
     Indication: RHEUMATOID ARTHRITIS
     Dosage: 50 MG, QWK
     Dates: start: 20110509
  2. PREDNISONE TAB [Concomitant]
     Dosage: UNK

REACTIONS (5)
  - HYPERGLYCAEMIA [None]
  - ARTHRALGIA [None]
  - NAUSEA [None]
  - JOINT STIFFNESS [None]
  - WEIGHT DECREASED [None]
